FAERS Safety Report 5890814-3 (Version None)
Quarter: 2008Q3

REPORT INFORMATION
  Report Type: 
  Country: None (occurrence: None)
  Receive Date: 20080922
  Receipt Date: 20080909
  Transmission Date: 20090109
  Serious: Yes (Other)
  Sender: FDA-Public Use
  Company Number: GB-AMGEN-US308571

PATIENT
  Age: 13 Year
  Sex: Female

DRUGS (4)
  1. ENBREL [Suspect]
     Indication: JUVENILE ARTHRITIS
     Dosage: 0.4MG/KG TWICE WEEKLY
     Route: 058
     Dates: start: 19991001, end: 19991201
  2. ENBREL [Suspect]
     Dosage: 0.4MG/KG TWICE WEEKLY
     Route: 058
     Dates: start: 20000401, end: 20000501
  3. ENBREL [Suspect]
     Dosage: 0.1MG/KG TWICE WEEKLY UP TO 0.4MG/KG TWICE WEEKLY
     Route: 058
     Dates: start: 20000101, end: 20010301
  4. ENBREL [Suspect]
     Dosage: 0.5MG/KG TWICE WEEKLY
     Route: 058
     Dates: start: 20010301

REACTIONS (2)
  - CUTANEOUS VASCULITIS [None]
  - DISEASE PROGRESSION [None]
